FAERS Safety Report 9769588 (Version 1)
Quarter: 2013Q4

REPORT INFORMATION
  Report Type: Spontaneous
  Country: FR (occurrence: FR)
  Receive Date: 20131218
  Receipt Date: 20131218
  Transmission Date: 20140711
  Serious: Yes (Death, Hospitalization, Other)
  Sender: FDA-Public Use
  Company Number: FR-JNJFOC-20131207158

PATIENT
  Sex: 0

DRUGS (11)
  1. REMICADE [Suspect]
     Indication: POLYARTERITIS NODOSA
     Route: 042
  2. REMICADE [Suspect]
     Indication: PSORIASIS
     Route: 042
  3. REMICADE [Suspect]
     Indication: CROHN^S DISEASE
     Route: 042
  4. REMICADE [Suspect]
     Indication: ANKYLOSING SPONDYLITIS
     Route: 042
  5. REMICADE [Suspect]
     Indication: RHEUMATOID ARTHRITIS
     Route: 042
  6. CORTICOSTEROIDS [Concomitant]
     Route: 065
  7. METHOTREXATE [Concomitant]
     Route: 065
  8. AZATHIOPRINE [Concomitant]
     Route: 065
  9. LEFLUNOMIDE [Concomitant]
     Route: 065
  10. CYCLOPHOSPHAMIDE [Concomitant]
     Route: 065
  11. CYCLOSPORINE [Concomitant]
     Route: 065

REACTIONS (8)
  - Staphylococcal bacteraemia [Fatal]
  - Bacteraemia [Unknown]
  - Septic shock [Unknown]
  - Arthritis bacterial [Unknown]
  - Cellulitis [Unknown]
  - Necrotising fasciitis [Unknown]
  - Meningitis [Unknown]
  - Sepsis [Unknown]
